FAERS Safety Report 8169405-X (Version None)
Quarter: 2012Q1

REPORT INFORMATION
  Report Type: 
  Country: None (occurrence: None)
  Receive Date: 20120222
  Receipt Date: 20120209
  Transmission Date: 20120608
  Serious: Yes (Other)
  Sender: FDA-Public Use
  Company Number: DSA_55088_2012

PATIENT
  Age: 43 Year
  Sex: Male

DRUGS (4)
  1. IRINOTECAN HCL [Concomitant]
  2. AVASTIN [Concomitant]
  3. LEUCOVORIN CALCIUM [Concomitant]
  4. FLUOROURACIL [Suspect]
     Indication: COLON CANCER
     Dosage: (DF INTRAVENOUS (NOT OTHERWISE SPECIFIED)), (DF INTRAVENOUS (NOT OTHERWISE SPECIFIED)
     Route: 042

REACTIONS (3)
  - ANGINA PECTORIS [None]
  - ELECTROCARDIOGRAM T WAVE PEAKED [None]
  - ELECTROCARDIOGRAM ST SEGMENT ELEVATION [None]
